FAERS Safety Report 5392641-2 (Version None)
Quarter: 2007Q3

REPORT INFORMATION
  Report Type: 
  Country: None (occurrence: None)
  Receive Date: 20070720
  Receipt Date: 20070713
  Transmission Date: 20080115
  Serious: Yes (Life-Threatening)
  Sender: FDA-Public Use
  Company Number: US-GENENTECH-239629

PATIENT
  Sex: Male
  Weight: 130 kg

DRUGS (15)
  1. BLINDED NO STUDY DRUG ADMINISTERED [Suspect]
     Indication: ASTHMA
     Dosage: UNK, Q4W
     Route: 042
     Dates: start: 20061213
  2. BLINDED OMALIZUMAB [Suspect]
     Indication: ASTHMA
     Dosage: UNK, Q4W
     Route: 042
     Dates: start: 20061213
  3. BLINDED PLACEBO [Suspect]
     Indication: ASTHMA
     Dosage: UNK, Q4W
     Route: 042
     Dates: start: 20061213
  4. GLUCOVANCE [Concomitant]
     Indication: DIABETES MELLITUS
     Dosage: UNK, BID
  5. INSULIN (SLIDING SCALE) [Concomitant]
     Indication: DIABETES MELLITUS
     Dosage: UNK, X4
     Dates: start: 20000101
  6. LISINOPRIL [Concomitant]
     Indication: HYPERTENSION
     Dosage: 10 MG, QD
     Dates: start: 19960101
  7. DILTIAZEM [Concomitant]
     Indication: HYPERTENSION
     Dosage: 240 MG, QD
     Dates: start: 20020101
  8. ASPIRIN [Concomitant]
     Indication: HYPERTENSION
     Dosage: 325 MG, QD
     Dates: start: 20040101
  9. ALBUTEROL [Concomitant]
     Indication: ASTHMA
     Dosage: UNK, PRN
     Dates: start: 19960101
  10. ALBUTEROL [Concomitant]
     Indication: ASTHMA
     Dosage: UNK, PRN
     Dates: start: 19960101
  11. ADVAIR DISKUS 100/50 [Concomitant]
     Indication: ASTHMA
     Dosage: 1 PUFF, BID
     Dates: start: 20060101
  12. SINGULAIR [Concomitant]
     Indication: ASTHMA
     Dosage: 10 MG, QD
     Dates: start: 20060101
  13. THEOPHYLLINE [Concomitant]
     Indication: ASTHMA
     Dosage: 1000 MG, TID
     Dates: start: 20060101
  14. PROZAC [Concomitant]
     Indication: DEPRESSION
     Dosage: 10 MG, QD
     Dates: start: 19750101
  15. PRILOSEC [Concomitant]
     Indication: GASTROOESOPHAGEAL REFLUX DISEASE
     Dosage: 20 MG, QD
     Dates: start: 20050101

REACTIONS (4)
  - FLUSHING [None]
  - HYPERSENSITIVITY [None]
  - PHARYNGEAL OEDEMA [None]
  - WHEEZING [None]
